FAERS Safety Report 8306837-0 (Version None)
Quarter: 2012Q2

REPORT INFORMATION
  Report Type: 
  Country: None (occurrence: None)
  Receive Date: 20120424
  Receipt Date: 20120413
  Transmission Date: 20120825
  Serious: No
  Sender: FDA-Public Use
  Company Number: US-PFIZER INC-2012092795

PATIENT
  Sex: Female
  Weight: 72 kg

DRUGS (3)
  1. IMITREX [Suspect]
     Indication: MIGRAINE
     Dosage: 100 MG, ALTERNATE DAY
     Route: 048
  2. RELPAX [Suspect]
     Indication: MIGRAINE
     Dosage: UNK, AS NEEDED
     Route: 048
     Dates: end: 20120101
  3. RELPAX [Suspect]
     Dosage: 40 MG, UNK
     Route: 048

REACTIONS (2)
  - PALPITATIONS [None]
  - NASOPHARYNGITIS [None]
